FAERS Safety Report 4365785-1 (Version None)
Quarter: 2004Q2

REPORT INFORMATION
  Report Type: 
  Country: None (occurrence: None)
  Receive Date: 20040520
  Receipt Date: 20040507
  Transmission Date: 20050107
  Serious: No
  Sender: FDA-Public Use
  Company Number: 2004AP00846

PATIENT
  Age: 82 Year
  Sex: Male

DRUGS (7)
  1. CASODEX [Suspect]
     Indication: PROSTATE CANCER
     Dosage: 80 MG DAILY PO
     Route: 048
     Dates: start: 20040127, end: 20040212
  2. LEUPROLIDE ACETATE [Concomitant]
  3. RADIATION THERAPY [Concomitant]
  4. INSULIN [Concomitant]
  5. MS CONTIN [Concomitant]
  6. NAUZELIN [Concomitant]
  7. AMOBAN [Concomitant]

REACTIONS (1)
  - PLATELET COUNT DECREASED [None]
